FAERS Safety Report 5654694-3 (Version None)
Quarter: 2008Q1

REPORT INFORMATION
  Report Type: 
  Country: None (occurrence: None)
  Receive Date: 20080307
  Receipt Date: 20080227
  Transmission Date: 20080703
  Serious: Yes (Other)
  Sender: FDA-Public Use
  Company Number: US-JNJFOC-20080300015

PATIENT
  Age: 70 Year
  Sex: Female

DRUGS (1)
  1. ARESTIN [Suspect]
     Indication: DRUG USE FOR UNKNOWN INDICATION
     Dosage: 1 MG
     Route: 004

REACTIONS (3)
  - BLINDNESS [None]
  - LIP PAIN [None]
  - NASAL DISCOMFORT [None]
